FAERS Safety Report 11774449 (Version 1)
Quarter: 2015Q4

REPORT INFORMATION
  Report Type: Spontaneous
  Country: US (occurrence: US)
  Receive Date: 20151124
  Receipt Date: 20151124
  Transmission Date: 20160304
  Serious: No
  Sender: FDA-Public Use
  Company Number: US-GLAXOSMITHKLINE-US2015GSK162774

PATIENT
  Sex: Female

DRUGS (2)
  1. TANZEUM [Suspect]
     Active Substance: ALBIGLUTIDE
     Indication: TYPE 2 DIABETES MELLITUS
     Dosage: 30 MG, WE
     Dates: start: 201506
  2. TANZEUM [Suspect]
     Active Substance: ALBIGLUTIDE
     Indication: GLYCOSYLATED HAEMOGLOBIN INCREASED
     Dosage: 50 MG, WE
     Dates: start: 20150924

REACTIONS (11)
  - Constipation [Unknown]
  - Respiratory tract congestion [Unknown]
  - Nausea [Recovered/Resolved]
  - Drug effect incomplete [Unknown]
  - Dyspnoea exertional [Unknown]
  - Musculoskeletal pain [Unknown]
  - Headache [Unknown]
  - Blood pressure increased [Unknown]
  - Back pain [Unknown]
  - Dyspnoea [Unknown]
  - Oropharyngeal pain [Unknown]
